FAERS Safety Report 7267406-7 (Version None)
Quarter: 2011Q1

REPORT INFORMATION
  Report Type: 
  Country: None (occurrence: None)
  Receive Date: 20110201
  Receipt Date: 20110111
  Transmission Date: 20110831
  Serious: No
  Sender: FDA-Public Use
  Company Number: A0892025A

PATIENT
  Age: 83 Year
  Sex: Male

DRUGS (15)
  1. PERIDOX [Concomitant]
  2. TAMSULOSIN HCL [Concomitant]
  3. STOOL SOFTENER [Concomitant]
  4. ARIXTRA [Suspect]
     Dosage: 7.5MG PER DAY
     Route: 058
     Dates: start: 20090101
  5. CENTRUM SILVER [Concomitant]
  6. OMEPRAZOLE [Concomitant]
  7. LOVENOX [Concomitant]
  8. DILTIAZEM [Concomitant]
  9. NYSTATIN [Concomitant]
  10. ATENOLOL [Concomitant]
  11. LOVENOX [Suspect]
     Route: 058
  12. COMBIVENT [Concomitant]
  13. TRIAMTERENE AND HYDROCHLOROTHIAZIDE [Concomitant]
  14. LATANOPROST [Concomitant]
  15. ACETYLSALICYLIC ACID SRT [Concomitant]

REACTIONS (4)
  - PUNCTURE SITE PAIN [None]
  - INJECTION SITE PAIN [None]
  - PRODUCT QUALITY ISSUE [None]
  - CONTUSION [None]
